FAERS Safety Report 17000464 (Version 1)
Quarter: 2019Q4

REPORT INFORMATION
  Report Type: Spontaneous
  Country: US (occurrence: US)
  Receive Date: 20191106
  Receipt Date: 20191106
  Transmission Date: 20200122
  Serious: No
  Sender: FDA-Public Use
  Company Number: US-TEVA-2019-US-1131589

PATIENT
  Sex: Female

DRUGS (2)
  1. PROGESTERONE IN OIL INJ [Suspect]
     Active Substance: PROGESTERONE
     Dosage: FORM OF ADMIN: UNKNOWN
     Route: 065
  2. PROGESTERONE IN OIL INJ [Suspect]
     Active Substance: PROGESTERONE
     Route: 065

REACTIONS (2)
  - Adverse event [Unknown]
  - Urticaria [Unknown]
